FAERS Safety Report 18846704 (Version 3)
Quarter: 2021Q2

REPORT INFORMATION
  Report Type: Spontaneous
  Country: US (occurrence: US)
  Receive Date: 20210204
  Receipt Date: 20210518
  Transmission Date: 20210717
  Serious: Yes (Hospitalization, Other)
  Sender: FDA-Public Use
  Company Number: US-ROCHE-2763076

PATIENT
  Age: 77 Year
  Sex: Male

DRUGS (26)
  1. SYNTHROID [Concomitant]
     Active Substance: LEVOTHYROXINE SODIUM
  2. TAMSULOSIN [Concomitant]
     Active Substance: TAMSULOSIN
  3. VALSARTAN. [Concomitant]
     Active Substance: VALSARTAN
  4. FLUOXETINE [Concomitant]
     Active Substance: FLUOXETINE HYDROCHLORIDE
  5. REPAGLINIDE. [Concomitant]
     Active Substance: REPAGLINIDE
  6. ROSUVASTATIN. [Concomitant]
     Active Substance: ROSUVASTATIN
  7. VENLAFAXINE [Concomitant]
     Active Substance: VENLAFAXINE HYDROCHLORIDE
  8. AMLODIPINE [Concomitant]
     Active Substance: AMLODIPINE BESYLATE
  9. DDAVP [Concomitant]
     Active Substance: DESMOPRESSIN ACETATE
  10. JANUMET [Concomitant]
     Active Substance: METFORMIN HYDROCHLORIDE\SITAGLIPTIN PHOSPHATE
  11. OMEGA?3 ACIDS [Concomitant]
     Active Substance: OMEGA-3 FATTY ACIDS
  12. HCTZ [Concomitant]
     Active Substance: HYDROCHLOROTHIAZIDE
  13. VITAMIN D3 [Concomitant]
     Active Substance: CHOLECALCIFEROL
  14. DESMOPRESSIN [Concomitant]
     Active Substance: DESMOPRESSIN
  15. LULICONAZOLE. [Concomitant]
     Active Substance: LULICONAZOLE
  16. PIOGLITAZONE. [Concomitant]
     Active Substance: PIOGLITAZONE
  17. NUTROPIN AQ [Suspect]
     Active Substance: SOMATROPIN
     Indication: DWARFISM
     Dosage: EVERY EVENING?10MG/2ML
     Route: 058
     Dates: start: 20150702
  18. CRESTOR [Concomitant]
     Active Substance: ROSUVASTATIN CALCIUM
  19. FENOFIBRATE. [Concomitant]
     Active Substance: FENOFIBRATE
  20. IRBESARTAN. [Concomitant]
     Active Substance: IRBESARTAN
  21. METFORMIN [Concomitant]
     Active Substance: METFORMIN HYDROCHLORIDE
  22. ALOPURINOL [Concomitant]
     Active Substance: ALLOPURINOL
  23. DOXAZOSIN [Concomitant]
     Active Substance: DOXAZOSIN MESYLATE
  24. FISH OIL [Concomitant]
     Active Substance: FISH OIL
  25. PREDNISONE. [Concomitant]
     Active Substance: PREDNISONE
  26. RISEDRONATE [Concomitant]
     Active Substance: RISEDRONATE SODIUM

REACTIONS (4)
  - Blood urine present [Unknown]
  - Renal neoplasm [Unknown]
  - Prostate cancer [Unknown]
  - Haematuria [Unknown]

NARRATIVE: CASE EVENT DATE: 20201228
